FAERS Safety Report 4622749-8 (Version None)
Quarter: 2005Q1

REPORT INFORMATION
  Report Type: 
  Country: None (occurrence: None)
  Receive Date: 20050329
  Receipt Date: 20050329
  Transmission Date: 20050727
  Serious: No
  Sender: FDA-Public Use
  Company Number: None

PATIENT
  Sex: Female
  Weight: 81.6 kg

DRUGS (1)
  1. PENTOSTATIN [Suspect]
     Dosage: 2 MG/M2 (DOSE REDUCED DUE TO DECREAED CREATININE CLEARANCE)
     Dates: start: 20041118

REACTIONS (6)
  - CONDITION AGGRAVATED [None]
  - DEEP VEIN THROMBOSIS [None]
  - DISSEMINATED INTRAVASCULAR COAGULATION [None]
  - LOBAR PNEUMONIA [None]
  - RESPIRATORY DISTRESS [None]
  - THROMBOCYTOPENIA [None]
